FAERS Safety Report 7642211-8 (Version None)
Quarter: 2011Q3

REPORT INFORMATION
  Report Type: 
  Country: None (occurrence: None)
  Receive Date: 20110728
  Receipt Date: 20110715
  Transmission Date: 20111222
  Serious: Yes (Hospitalization)
  Sender: FDA-Public Use
  Company Number: TR-MYLANLABS-2011S1014689

PATIENT
  Age: 8 Year
  Sex: Male
  Weight: 29 kg

DRUGS (2)
  1. TOPIRAMATE [Suspect]
     Indication: CONVULSION
     Dosage: 10 TABLETS OF 25MG TWICE DAILY (17.2 MG/KG) FOR FIRST 3 DAYS
     Route: 048
  2. TOPIRAMATE [Suspect]
     Dosage: 10 TABLETS OF 50MG TWICE DAILY (34.4 MG/KG) FOR 3 DAYS
     Route: 048

REACTIONS (8)
  - LETHARGY [None]
  - NAUSEA [None]
  - AGITATION [None]
  - MENINGEAL DISORDER [None]
  - TOXICITY TO VARIOUS AGENTS [None]
  - ATAXIA [None]
  - VOMITING [None]
  - DRUG ADMINISTRATION ERROR [None]
